FAERS Safety Report 24081078 (Version 1)
Quarter: 2024Q3

REPORT INFORMATION
  Report Type: Spontaneous
  Country: US (occurrence: US)
  Receive Date: 20240711
  Receipt Date: 20240711
  Transmission Date: 20241017
  Serious: No
  Sender: BAUSCH AND LOMB
  Company Number: US-BAUSCHBL-2024BNL029596

PATIENT
  Age: 85 Year
  Sex: Female
  Weight: 91 kg

DRUGS (1)
  1. XIIDRA [Suspect]
     Active Substance: LIFITEGRAST
     Indication: Dry eye
     Dosage: 1 GTT  BID
     Route: 047
     Dates: start: 20240629, end: 20240703

REACTIONS (4)
  - Ocular hyperaemia [Unknown]
  - Pruritus [Unknown]
  - Ill-defined disorder [Unknown]
  - Eye irritation [Unknown]

NARRATIVE: CASE EVENT DATE: 20240101
